FAERS Safety Report 15855282 (Version 1)
Quarter: 2019Q1

REPORT INFORMATION
  Report Type: Report from Study
  Country: US (occurrence: US)
  Receive Date: 20190122
  Receipt Date: 20190122
  Transmission Date: 20190417
  Serious: Yes (Hospitalization)
  Sender: FDA-Public Use
  Company Number: US-GILEAD-2019-0386110

PATIENT
  Age: 81 Year
  Sex: Female

DRUGS (22)
  1. TADALAFIL. [Concomitant]
     Active Substance: TADALAFIL
  2. PANTOPRAZOLE [Concomitant]
     Active Substance: PANTOPRAZOLE
  3. SPIRONOLACTONE. [Concomitant]
     Active Substance: SPIRONOLACTONE
  4. GABAPENTIN. [Concomitant]
     Active Substance: GABAPENTIN
  5. METOCLOPRAMIDE. [Concomitant]
     Active Substance: METOCLOPRAMIDE
  6. AMBRISENTAN [Suspect]
     Active Substance: AMBRISENTAN
     Dosage: 10 UNK
     Route: 065
     Dates: start: 20190116
  7. POTASSIUM [Concomitant]
     Active Substance: POTASSIUM
  8. ROPINIROL [ROPINIROLE HYDROCHLORIDE] [Concomitant]
  9. ALBUTEROL [SALBUTAMOL SULFATE] [Concomitant]
     Active Substance: ALBUTEROL SULFATE
  10. VITAMIN B12 [COBAMAMIDE] [Concomitant]
  11. AMBRISENTAN [Suspect]
     Active Substance: AMBRISENTAN
     Indication: PRODUCT USED FOR UNKNOWN INDICATION
     Dosage: 10 MG, QD
     Route: 065
     Dates: start: 20160413, end: 20190113
  12. ATORVASTATIN [Concomitant]
     Active Substance: ATORVASTATIN
  13. MONTELUKAST [Concomitant]
     Active Substance: MONTELUKAST SODIUM
  14. TRAMADOL. [Concomitant]
     Active Substance: TRAMADOL
  15. FUROSEMIDE. [Concomitant]
     Active Substance: FUROSEMIDE
  16. IRON [Concomitant]
     Active Substance: IRON
  17. LEVOFLOXACIN. [Concomitant]
     Active Substance: LEVOFLOXACIN
  18. METOPROLOL. [Concomitant]
     Active Substance: METOPROLOL
  19. TYLENOL [Concomitant]
     Active Substance: ACETAMINOPHEN
  20. FOLIC ACID. [Concomitant]
     Active Substance: FOLIC ACID
  21. FLUTICASONE. [Concomitant]
     Active Substance: FLUTICASONE
  22. ONDANSETRON [Concomitant]
     Active Substance: ONDANSETRON

REACTIONS (1)
  - Gastric disorder [Recovered/Resolved]

NARRATIVE: CASE EVENT DATE: 20190114
